FAERS Safety Report 9574579 (Version 2)
Quarter: 2013Q4

REPORT INFORMATION
  Report Type: Spontaneous
  Country: US (occurrence: US)
  Receive Date: 20131001
  Receipt Date: 20131218
  Transmission Date: 20140711
  Serious: Yes (Other)
  Sender: FDA-Public Use
  Company Number: US-TEVA-435402USA

PATIENT
  Age: 39 Year
  Sex: Female
  Weight: 61.29 kg

DRUGS (3)
  1. PARAGARD 380A [Suspect]
     Indication: CONTRACEPTION
     Route: 015
     Dates: start: 20130925, end: 20130926
  2. FLEXERIL [Concomitant]
     Indication: MYALGIA
  3. PAXIL [Concomitant]
     Indication: ANXIETY

REACTIONS (2)
  - Embedded device [Recovered/Resolved]
  - Device dislocation [Recovered/Resolved]
